APPROVED DRUG PRODUCT: ACYCLOVIR
Active Ingredient: ACYCLOVIR
Strength: 200MG
Dosage Form/Route: CAPSULE;ORAL
Application: A075090 | Product #001 | TE Code: AB
Applicant: REGCON HOLDINGS LLC
Approved: Jan 26, 1999 | RLD: No | RS: No | Type: RX